FAERS Safety Report 15145506 (Version 1)
Quarter: 2018Q3

REPORT INFORMATION
  Report Type: Report from Study
  Country: IT (occurrence: IT)
  Receive Date: 20180713
  Receipt Date: 20180713
  Transmission Date: 20181010
  Serious: Yes (Other)
  Sender: FDA-Public Use
  Company Number: IT-GILEAD-2018-0350036

PATIENT
  Age: 74 Year
  Sex: Male
  Weight: 80 kg

DRUGS (13)
  1. ISOSORBIDE DINITRATE. [Concomitant]
     Active Substance: ISOSORBIDE DINITRATE
  2. ENOXAPARIN SODIUM. [Concomitant]
     Active Substance: ENOXAPARIN SODIUM
  3. MIRTAZAPINE. [Interacting]
     Active Substance: MIRTAZAPINE
     Indication: PRODUCT USED FOR UNKNOWN INDICATION
     Route: 048
     Dates: start: 20180419
  4. ATORVASTATIN [Concomitant]
     Active Substance: ATORVASTATIN
  5. BISOPROLOL FUMARATE. [Concomitant]
     Active Substance: BISOPROLOL FUMARATE
  6. ACETYLSALICYLIC ACID [Concomitant]
     Active Substance: ASPIRIN
  7. RANITIDINE. [Concomitant]
     Active Substance: RANITIDINE
  8. FUROSEMIDE. [Concomitant]
     Active Substance: FUROSEMIDE
  9. TIOTROPIUM BROMIDE [Concomitant]
     Active Substance: TIOTROPIUM BROMIDE
  10. CLOPIDOGREL [Concomitant]
     Active Substance: CLOPIDOGREL BISULFATE
  11. VALSARTAN. [Concomitant]
     Active Substance: VALSARTAN
  12. RANOLAZINE. [Suspect]
     Active Substance: RANOLAZINE
     Indication: ISCHAEMIC HEART DISEASE PROPHYLAXIS
     Dosage: 375 MG, UNK
     Route: 048
  13. RELVAR ELLIPTA [Interacting]
     Active Substance: FLUTICASONE FUROATE\VILANTEROL TRIFENATATE
     Indication: PRODUCT USED FOR UNKNOWN INDICATION
     Route: 065

REACTIONS (3)
  - Drug interaction [Unknown]
  - Electrocardiogram QT prolonged [Unknown]
  - Off label use [Unknown]

NARRATIVE: CASE EVENT DATE: 20180419
